FAERS Safety Report 21836268 (Version 1)
Quarter: 2023Q1

REPORT INFORMATION
  Report Type: Spontaneous
  Country: AT (occurrence: AT)
  Receive Date: 20230109
  Receipt Date: 20230109
  Transmission Date: 20230418
  Serious: Yes (Other)
  Sender: FDA-Public Use
  Company Number: None

PATIENT
  Age: 17 Year
  Sex: Female

DRUGS (2)
  1. RIFAMPIN [Interacting]
     Active Substance: RIFAMPIN
     Dosage: UNK
     Dates: end: 202112
  2. COMIRNATY [Interacting]
     Active Substance: TOZINAMERAN
     Dosage: THIRD PARTIAL VACCINATION / THIRD DOSE
     Dates: start: 20211219

REACTIONS (6)
  - Contusion [Recovered/Resolved]
  - Arthralgia [Not Recovered/Not Resolved]
  - Chest discomfort [Recovered/Resolved]
  - Vaccination site pain [Unknown]
  - Oropharyngeal pain [Recovered/Resolved]
  - Cough [Recovered/Resolved]

NARRATIVE: CASE EVENT DATE: 20211201
